FAERS Safety Report 9079850 (Version 1)
Quarter: 2013Q1

REPORT INFORMATION
  Report Type: Spontaneous
  Country: SE (occurrence: SE)
  Receive Date: 20130215
  Receipt Date: 20130215
  Transmission Date: 20140127
  Serious: Yes (Hospitalization)
  Sender: FDA-Public Use
  Company Number: SE-GLAXOSMITHKLINE-B0867882A

PATIENT
  Age: 64 Year
  Sex: Female

DRUGS (11)
  1. BACTRIM [Suspect]
     Indication: PRODUCT USED FOR UNKNOWN INDICATION
     Route: 065
  2. VALTREX [Suspect]
     Indication: PRODUCT USED FOR UNKNOWN INDICATION
     Route: 065
  3. FLUCONAZOL [Suspect]
     Indication: PRODUCT USED FOR UNKNOWN INDICATION
     Route: 065
  4. NOVOMIX [Concomitant]
  5. NEORECORMON [Concomitant]
  6. OMEPRAZOL [Concomitant]
  7. METOPROLOL [Concomitant]
  8. SODIUM CHLORIDE [Concomitant]
  9. EMGESAN [Concomitant]
  10. MULTIVITAMINS [Concomitant]
  11. PREDNISOLONE [Concomitant]

REACTIONS (4)
  - Inappropriate antidiuretic hormone secretion [Not Recovered/Not Resolved]
  - Nausea [Not Recovered/Not Resolved]
  - Vomiting [Not Recovered/Not Resolved]
  - Hyponatraemia [Not Recovered/Not Resolved]
